FAERS Safety Report 16469966 (Version 1)
Quarter: 2019Q2

REPORT INFORMATION
  Report Type: Spontaneous
  Country: US (occurrence: US)
  Receive Date: 20190624
  Receipt Date: 20190624
  Transmission Date: 20190711
  Serious: Yes (Death, Hospitalization, Other)
  Sender: FDA-Public Use
  Company Number: US-ACELLA PHARMACEUTICALS, LLC-2069525

PATIENT
  Age: 60 Year
  Sex: Female

DRUGS (2)
  1. BROMPHENIRAMINE MAL, PSEUDOEPHEDRINE HCL, AND DEXTROMETHORPHAN HBR (AN [Suspect]
     Active Substance: DEXBROMPHENIRAMINE MALEATE\DEXTROMETHORPHAN HYDROBROMIDE\PSEUDOEPHEDRINE HYDROCHLORIDE
     Indication: AFFECT LABILITY
     Route: 065
  2. QUINIDINE [Suspect]
     Active Substance: QUINIDINE
     Route: 065

REACTIONS (3)
  - Asthenia [Fatal]
  - Skin discolouration [Fatal]
  - Death [Fatal]
